FAERS Safety Report 10950019 (Version 1)
Quarter: 2015Q1

REPORT INFORMATION
  Report Type: Spontaneous
  Country: US (occurrence: US)
  Receive Date: 20150324
  Receipt Date: 20150324
  Transmission Date: 20150721
  Serious: Yes (Hospitalization)
  Sender: FDA-Public Use
  Company Number: US-TMC-CABO-13003294

PATIENT
  Age: 13 Year
  Sex: Female
  Weight: 37.3 kg

DRUGS (13)
  1. COMETRIQ [Suspect]
     Active Substance: CABOZANTINIB S-MALATE
     Dosage: 20 MG QD
     Route: 048
     Dates: start: 2013, end: 2013
  2. LEDYRXINE [Concomitant]
  3. NEURONTIN [Concomitant]
     Active Substance: GABAPENTIN
  4. COMETRIQ [Suspect]
     Active Substance: CABOZANTINIB S-MALATE
     Dosage: 20 MG, MON-WED, FRI, SAT
     Route: 048
     Dates: start: 2013, end: 2013
  5. OXYCODONE [Concomitant]
     Active Substance: OXYCODONE
  6. SULFAMETHOXAZOLE [Concomitant]
     Active Substance: SULFAMETHOXAZOLE
  7. COMETRIQ [Suspect]
     Active Substance: CABOZANTINIB S-MALATE
     Dosage: 40 MG, THURS/SUN
     Route: 048
     Dates: start: 2013, end: 2013
  8. COMETRIQ [Suspect]
     Active Substance: CABOZANTINIB S-MALATE
     Dosage: 20 MG, QD
     Route: 048
     Dates: start: 20140204
  9. DEXAMETHASONE. [Concomitant]
     Active Substance: DEXAMETHASONE
  10. LEVOTHYROXINE [Concomitant]
     Active Substance: LEVOTHYROXINE
  11. COMETRIQ [Suspect]
     Active Substance: CABOZANTINIB S-MALATE
     Indication: BONE CANCER
     Dosage: 60 MG, QD
     Route: 048
     Dates: start: 20130728, end: 20130919
  12. COMETRIQ [Suspect]
     Active Substance: CABOZANTINIB S-MALATE
     Dosage: 60 MG, QD
     Route: 048
     Dates: start: 20130923, end: 20131004
  13. LUNESTA [Concomitant]
     Active Substance: ESZOPICLONE

REACTIONS (7)
  - Nausea [Unknown]
  - Off label use [Unknown]
  - Headache [Not Recovered/Not Resolved]
  - Abdominal pain upper [Unknown]
  - Decreased appetite [Unknown]
  - Gastroenteritis viral [Unknown]
  - Malaise [Unknown]

NARRATIVE: CASE EVENT DATE: 20130916
